FAERS Safety Report 6271270-2 (Version None)
Quarter: 2009Q3

REPORT INFORMATION
  Report Type: 
  Country: None (occurrence: None)
  Receive Date: 20090716
  Receipt Date: 20090716
  Transmission Date: 20100115
  Serious: Yes (Life-Threatening, Other)
  Sender: FDA-Public Use
  Company Number: None

PATIENT
  Sex: Male
  Weight: 82.1011 kg

DRUGS (1)
  1. FLOMAX [Suspect]
     Indication: URINARY TRACT DISORDER
     Dosage: 1 DAILY PO
     Route: 048
     Dates: start: 20060601, end: 20090713

REACTIONS (10)
  - ASTHENIA [None]
  - BACK PAIN [None]
  - BLOOD PRESSURE DECREASED [None]
  - CHEST PAIN [None]
  - DIZZINESS [None]
  - DRUG HYPERSENSITIVITY [None]
  - INSOMNIA [None]
  - SEXUAL DYSFUNCTION [None]
  - SOMNOLENCE [None]
  - SYNCOPE [None]
